FAERS Safety Report 6918016-X (Version None)
Quarter: 2010Q3

REPORT INFORMATION
  Report Type: 
  Country: None (occurrence: None)
  Receive Date: 20100810
  Receipt Date: 20091112
  Transmission Date: 20110219
  Serious: No
  Sender: FDA-Public Use
  Company Number: US-PFIZER INC-2009277244

PATIENT
  Sex: Male
  Weight: 63.5 kg

DRUGS (2)
  1. TOVIAZ [Suspect]
     Indication: NOCTURIA
     Dosage: 4 MG, DAILY
     Dates: start: 20090901, end: 20090920
  2. FOLIC ACID [Concomitant]

REACTIONS (3)
  - DRUG INEFFECTIVE [None]
  - HEADACHE [None]
  - URINE FLOW DECREASED [None]
